FAERS Safety Report 6641517-9 (Version None)
Quarter: 2010Q1

REPORT INFORMATION
  Report Type: 
  Country: None (occurrence: None)
  Receive Date: 20100317
  Receipt Date: 20100317
  Transmission Date: 20100710
  Serious: Yes (Other)
  Sender: FDA-Public Use
  Company Number: None

PATIENT
  Age: 33 Year
  Sex: Female

DRUGS (6)
  1. VANCOMYCIN HCL [Suspect]
     Indication: INFECTION
     Dosage: 1 G Q12HOURS IV
     Route: 042
     Dates: start: 20091019
  2. DULOXETINE HYDROCHLORIDE [Concomitant]
  3. BUPROPION HCL [Concomitant]
  4. ESOMEPRAZOLE [Concomitant]
  5. LEVOTHYROXINE SODIUM [Concomitant]
  6. HYDROCODONE [Concomitant]

REACTIONS (4)
  - DYSPNOEA [None]
  - INFUSION RELATED REACTION [None]
  - RASH [None]
  - SKIN BURNING SENSATION [None]
